FAERS Safety Report 7220961-5 (Version None)
Quarter: 2011Q1

REPORT INFORMATION
  Report Type: 
  Country: None (occurrence: None)
  Receive Date: 20110112
  Receipt Date: 20110104
  Transmission Date: 20110831
  Serious: Yes (Other)
  Sender: FDA-Public Use
  Company Number: DE-JNJFOC-20110100685

PATIENT
  Age: 41 Year
  Sex: Female

DRUGS (4)
  1. SUMATRIPTAN [Concomitant]
     Indication: MIGRAINE PROPHYLAXIS
     Route: 065
  2. SELEN [Concomitant]
     Indication: ILL-DEFINED DISORDER
     Route: 065
  3. TOPAMAX [Suspect]
     Indication: MIGRAINE PROPHYLAXIS
     Route: 048
     Dates: start: 20100901
  4. LEVOTHYROXINE SODIUM [Concomitant]
     Indication: ILL-DEFINED DISORDER
     Route: 065

REACTIONS (1)
  - ACUTE HEPATIC FAILURE [None]
